FAERS Safety Report 7225991-5 (Version None)
Quarter: 2011Q1

REPORT INFORMATION
  Report Type: 
  Country: None (occurrence: None)
  Receive Date: 20110113
  Receipt Date: 20110107
  Transmission Date: 20110831
  Serious: Yes (Life-Threatening, Hospitalization, Other)
  Sender: FDA-Public Use
  Company Number: FR-AMGEN-FRASP2011002166

PATIENT

DRUGS (3)
  1. ENBREL [Suspect]
     Dosage: UNK
     Dates: start: 20100901, end: 20101109
  2. ENBREL [Suspect]
     Indication: RHEUMATOID ARTHRITIS
     Dosage: UNK
     Dates: start: 20080201, end: 20100401
  3. METHOTREXATE SODIUM [Suspect]
     Indication: RHEUMATOID ARTHRITIS
     Dosage: UNK
     Dates: start: 20080201

REACTIONS (2)
  - PERICARDIAL EFFUSION [None]
  - PERICARDITIS [None]
